FAERS Safety Report 11678627 (Version 1)
Quarter: 2015Q4

REPORT INFORMATION
  Report Type: Spontaneous
  Country: US (occurrence: US)
  Receive Date: 20151028
  Receipt Date: 20151028
  Transmission Date: 20160304
  Serious: No
  Sender: FDA-Public Use
  Company Number: US-IMPAX LABORATORIES, INC-2015-IPXL-00765

PATIENT
  Age: 83 Year
  Sex: Male
  Weight: 57 kg

DRUGS (2)
  1. PARCOPA [Concomitant]
     Active Substance: CARBIDOPA\LEVODOPA
     Indication: PARKINSON^S DISEASE
     Dosage: UNK
     Route: 065
  2. RYTARY [Suspect]
     Active Substance: CARBIDOPA\LEVODOPA
     Indication: PARKINSON^S DISEASE
     Dosage: (23.75/ 95 MG) THREE TIMES DAILY
     Route: 048
     Dates: start: 201506, end: 20150706

REACTIONS (7)
  - Hyperhidrosis [Not Recovered/Not Resolved]
  - Musculoskeletal stiffness [Not Recovered/Not Resolved]
  - Dyspnoea [Not Recovered/Not Resolved]
  - Confusional state [Not Recovered/Not Resolved]
  - Muscle rigidity [Not Recovered/Not Resolved]
  - Compulsions [Unknown]
  - Drug effect decreased [Unknown]
